FAERS Safety Report 6894581-6 (Version None)
Quarter: 2010Q3

REPORT INFORMATION
  Report Type: 
  Country: None (occurrence: None)
  Receive Date: 20100802
  Receipt Date: 20100721
  Transmission Date: 20110219
  Serious: Yes (Other)
  Sender: FDA-Public Use
  Company Number: PHHY2010MX21463

PATIENT
  Age: 65 Year
  Sex: Female

DRUGS (2)
  1. EXFORGE [Suspect]
     Indication: HYPERTENSION
     Dosage: 2 TABLETS (160/5 MG) DAILY
     Route: 048
     Dates: start: 20100301
  2. EXFORGE [Suspect]
     Dosage: 1 TABLET (160/5MG) DAILY
     Route: 048
     Dates: start: 20100315, end: 20100720

REACTIONS (4)
  - BLOOD PRESSURE DECREASED [None]
  - HYPERHIDROSIS [None]
  - HYPOGLYCAEMIA [None]
  - MEMORY IMPAIRMENT [None]
